FAERS Safety Report 25473089 (Version 1)
Quarter: 2025Q2

REPORT INFORMATION
  Report Type: Report from Study
  Country: CA (occurrence: CA)
  Receive Date: 20250624
  Receipt Date: 20250624
  Transmission Date: 20250717
  Serious: Yes (Hospitalization)
  Sender: TAKEDA
  Company Number: CA-TAKEDA-2022TUS026096

PATIENT
  Age: 61 Year
  Sex: Female

DRUGS (7)
  1. VEDOLIZUMAB [Suspect]
     Active Substance: VEDOLIZUMAB
     Indication: Crohn^s disease
  2. VEDOLIZUMAB [Suspect]
     Active Substance: VEDOLIZUMAB
  3. VEDOLIZUMAB [Suspect]
     Active Substance: VEDOLIZUMAB
  4. VEDOLIZUMAB [Suspect]
     Active Substance: VEDOLIZUMAB
  5. VEDOLIZUMAB [Suspect]
     Active Substance: VEDOLIZUMAB
  6. CORTISONE [Concomitant]
     Active Substance: CORTISONE
  7. PENTASA [Concomitant]
     Active Substance: MESALAMINE

REACTIONS (14)
  - Chondrocalcinosis [Unknown]
  - Phlebitis [Unknown]
  - COVID-19 [Unknown]
  - Diarrhoea [Recovered/Resolved]
  - Frequent bowel movements [Unknown]
  - Abscess oral [Recovered/Resolved]
  - Cellulitis [Recovered/Resolved]
  - Mouth ulceration [Recovered/Resolved]
  - Malaise [Unknown]
  - Abdominal pain [Recovered/Resolved]
  - Nasal congestion [Unknown]
  - Chills [Recovered/Resolved]
  - Headache [Unknown]
  - Oropharyngeal pain [Unknown]

NARRATIVE: CASE EVENT DATE: 20220412
